FAERS Safety Report 5356551-9 (Version None)
Quarter: 2007Q2

REPORT INFORMATION
  Report Type: 
  Country: None (occurrence: None)
  Receive Date: 20070531
  Receipt Date: 20060621
  Transmission Date: 20071010
  Serious: Yes (Other)
  Sender: FDA-Public Use
  Company Number: 452842

PATIENT
  Age: 30 Year
  Sex: Female
  Weight: 63 kg

DRUGS (1)
  1. LARIAM [Suspect]
     Indication: MALARIA
     Dosage: 250 MG 1 PER ONE DOSE ORAL
     Route: 048
     Dates: start: 20060315, end: 20060401

REACTIONS (5)
  - ABDOMINAL PAIN [None]
  - ASTHENIA [None]
  - FATIGUE [None]
  - NEUROTOXICITY [None]
  - SIMPLE PARTIAL SEIZURES [None]
